FAERS Safety Report 5173986-8 (Version None)
Quarter: 2006Q4

REPORT INFORMATION
  Report Type: 
  Country: None (occurrence: None)
  Receive Date: 20061214
  Receipt Date: 20051013
  Transmission Date: 20070319
  Serious: Yes (Hospitalization)
  Sender: FDA-Public Use
  Company Number: US-ROCHE-421239

PATIENT
  Age: 50 Year
  Sex: Male

DRUGS (5)
  1. PEGASYS [Suspect]
     Route: 058
     Dates: start: 20050121, end: 20050708
  2. COPEGUS [Suspect]
     Route: 048
     Dates: start: 20050121, end: 20050708
  3. DIABEX [Concomitant]
  4. PERINDOPRIL ERBUMINE [Concomitant]
  5. 1 CONCOMITANT DRUG [Concomitant]
     Dosage: DRUG REPORTED AS TREPATIN.

REACTIONS (1)
  - CENTRAL PONTINE MYELINOLYSIS [None]
